FAERS Safety Report 6545767-1 (Version None)
Quarter: 2010Q1

REPORT INFORMATION
  Report Type: 
  Country: None (occurrence: None)
  Receive Date: 20100119
  Receipt Date: 20100109
  Transmission Date: 20100710
  Serious: Yes (Life-Threatening)
  Sender: FDA-Public Use
  Company Number: 474895

PATIENT
  Age: 47 Year
  Sex: Female

DRUGS (10)
  1. ONDANSETRON [Suspect]
     Indication: NAUSEA
     Dosage: 4 MG, UNKNOWN, INTRAVENOUS
     Route: 042
  2. ONDANSETRON [Suspect]
     Indication: VOMITING
     Dosage: 4 MG, UNKNOWN, INTRAVENOUS
     Route: 042
  3. DROPERIDOL [Suspect]
     Indication: NAUSEA
     Dosage: 2.5 MG,UNKNOWN, INTRAVENOUS
     Route: 042
  4. DROPERIDOL [Suspect]
     Indication: VOMITING
     Dosage: 2.5 MG,UNKNOWN, INTRAVENOUS
     Route: 042
  5. ESTROGENS [Suspect]
     Indication: HORMONE REPLACEMENT THERAPY
  6. CIMETIDINE [Suspect]
     Indication: GASTROOESOPHAGEAL REFLUX DISEASE
     Dosage: ORAL
     Route: 048
  7. NORTRIPTYLINE HCL [Suspect]
     Indication: ANXIETY
  8. NORTRIPTYLINE HCL [Suspect]
     Indication: DEPRESSION
  9. FLUOXETINE [Suspect]
     Indication: ANXIETY
  10. MORPHINE SULFATE [Concomitant]
     Indication: PAIN

REACTIONS (16)
  - ANXIETY [None]
  - BLOOD PRESSURE DECREASED [None]
  - CORONARY ARTERY DISEASE [None]
  - CORONARY OSTIAL STENOSIS [None]
  - DEPRESSION [None]
  - DRUG INTERACTION [None]
  - HEADACHE [None]
  - HYPOKALAEMIA [None]
  - HYPOMAGNESAEMIA [None]
  - PARAESTHESIA [None]
  - SINUS TACHYCARDIA [None]
  - STRESS CARDIOMYOPATHY [None]
  - TORSADE DE POINTES [None]
  - VENTRICULAR EXTRASYSTOLES [None]
  - VENTRICULAR TACHYCARDIA [None]
  - VOMITING [None]
